FAERS Safety Report 23302008 (Version 1)
Quarter: 2023Q4

REPORT INFORMATION
  Report Type: Spontaneous
  Country: BR (occurrence: BR)
  Receive Date: 20231215
  Receipt Date: 20231215
  Transmission Date: 20240110
  Serious: Yes (Other)
  Sender: FDA-Public Use
  Company Number: BR-TAKEDA-2023TUS120639

PATIENT
  Sex: Male
  Weight: 61 kg

DRUGS (4)
  1. MESALAMINE [Suspect]
     Active Substance: MESALAMINE
     Indication: Crohn^s disease
     Dosage: 500 MILLIGRAM, QD
     Route: 065
     Dates: start: 20231108
  2. MESALAMINE [Suspect]
     Active Substance: MESALAMINE
     Indication: Colitis ulcerative
  3. Chron asa 5 [Concomitant]
     Indication: Colitis
     Dosage: UNK UNK, TID
     Route: 048
  4. MESALAMINE [Concomitant]
     Active Substance: MESALAMINE
     Indication: Colitis
     Dosage: UNK UNK, TID
     Route: 048

REACTIONS (5)
  - Haematochezia [Unknown]
  - Mucous stools [Unknown]
  - Condition aggravated [Unknown]
  - Product storage error [Unknown]
  - Product physical issue [Unknown]
